FAERS Safety Report 5333960-5 (Version None)
Quarter: 2007Q2

REPORT INFORMATION
  Report Type: 
  Country: None (occurrence: None)
  Receive Date: 20070524
  Receipt Date: 20070515
  Transmission Date: 20071010
  Serious: Yes (Hospitalization)
  Sender: FDA-Public Use
  Company Number: FR-SANOFI-SYNTHELABO-F01200700579

PATIENT
  Sex: Male

DRUGS (3)
  1. LEUCOVORIN CALCIUM [Suspect]
     Route: 042
     Dates: start: 20070403, end: 20070404
  2. FLUOROURACIL [Suspect]
     Dosage: 600MG IV BOLUS AND 900MG CONTINUOUS INFUSION Q2W
     Route: 042
     Dates: start: 20070403, end: 20070404
  3. OXALIPLATIN [Suspect]
     Indication: COLON CANCER
     Route: 042
     Dates: start: 20070403, end: 20070403

REACTIONS (1)
  - EROSIVE OESOPHAGITIS [None]
